FAERS Safety Report 8596012 (Version 3)
Quarter: 2013Q4

REPORT INFORMATION
  Report Type: Spontaneous
  Country: US (occurrence: US)
  Receive Date: 20120605
  Receipt Date: 20131129
  Transmission Date: 20140711
  Serious: Yes (Hospitalization)
  Sender: FDA-Public Use
  Company Number: US-ASTRAZENECA-2012SE35575

PATIENT
  Sex: Female
  Weight: 82.6 kg

DRUGS (8)
  1. NEXIUM [Suspect]
     Indication: GASTRIC DISORDER
     Route: 048
     Dates: start: 1990, end: 2004
  2. NEXIUM [Suspect]
     Indication: GASTRIC DISORDER
     Route: 048
     Dates: start: 20040924
  3. HYDROCHLOROTHIAZIDE [Concomitant]
     Route: 048
     Dates: start: 20041014
  4. PREDNISONE [Concomitant]
     Dates: start: 20041120
  5. PREDNISONE [Concomitant]
     Dates: start: 20041130
  6. DIPHENHYDRAMINE [Concomitant]
     Route: 048
     Dates: start: 20041120
  7. NORTRIPTYLINE [Concomitant]
  8. NYSTATIN [Concomitant]

REACTIONS (7)
  - Gastric disorder [Unknown]
  - Osteoporosis [Unknown]
  - Multiple fractures [Unknown]
  - Anorexia nervosa [Unknown]
  - Arthritis [Unknown]
  - Polymyalgia rheumatica [Unknown]
  - Osteoarthritis [Unknown]
